FAERS Safety Report 8444851-5 (Version None)
Quarter: 2012Q2

REPORT INFORMATION
  Report Type: 
  Country: None (occurrence: None)
  Receive Date: 20120618
  Receipt Date: 20120613
  Transmission Date: 20120825
  Serious: Yes (Hospitalization, Other)
  Sender: FDA-Public Use
  Company Number: PHHY2012BR041259

PATIENT
  Sex: Female

DRUGS (9)
  1. DOMPERIDONE [Concomitant]
  2. TEGRETOL-XR [Suspect]
     Dosage: 3.5 DF, DAILY
  3. PANTOPRAZOLE [Concomitant]
  4. SERTRALINE HYDROCHLORIDE [Concomitant]
     Indication: DEPRESSION
  5. CLOBAZAM [Concomitant]
  6. TEGRETOL-XR [Suspect]
     Indication: EPILEPSY
     Dosage: 3 DF, DAILY
     Dates: start: 20111101
  7. TEGRETOL [Suspect]
     Indication: EPILEPSY
  8. ALPRAZOLAM [Concomitant]
     Indication: DEPRESSION
  9. TEGRETOL-XR [Suspect]
     Dosage: 0.5 DF, DAILY

REACTIONS (6)
  - CONVULSION [None]
  - CEREBROVASCULAR ACCIDENT [None]
  - DEEP VEIN THROMBOSIS [None]
  - SYNCOPE [None]
  - EPILEPSY [None]
  - DRUG INEFFECTIVE [None]
